FAERS Safety Report 4268117-2 (Version None)
Quarter: 2004Q1

REPORT INFORMATION
  Report Type: 
  Country: None (occurrence: None)
  Receive Date: 20040109
  Receipt Date: 20040105
  Transmission Date: 20041129
  Serious: Yes (Hospitalization)
  Sender: FDA-Public Use
  Company Number: CH-ROCHE-355188

PATIENT
  Age: 67 Year
  Sex: Male

DRUGS (9)
  1. TOREM [Suspect]
     Indication: DRUG USE FOR UNKNOWN INDICATION
     Route: 048
  2. ALDACTONE [Interacting]
     Indication: DRUG USE FOR UNKNOWN INDICATION
     Route: 048
     Dates: end: 20031215
  3. COVERSUM [Interacting]
     Indication: DRUG USE FOR UNKNOWN INDICATION
     Route: 048
  4. BELOC [Concomitant]
     Dosage: DRUG REPORTED AS BELOC COR.
     Route: 048
     Dates: end: 20031215
  5. CORDARONE [Concomitant]
     Indication: ATRIAL FIBRILLATION
     Route: 048
     Dates: start: 19990615, end: 20031215
  6. PANTOZOL [Concomitant]
     Route: 048
  7. BENERVA [Concomitant]
     Route: 048
  8. SINTROM [Concomitant]
     Route: 048
  9. BECOZYM [Concomitant]
     Route: 048

REACTIONS (4)
  - DRUG INTERACTION [None]
  - HYPERKALAEMIA [None]
  - RENAL FAILURE ACUTE [None]
  - SINUS BRADYCARDIA [None]
